FAERS Safety Report 16999785 (Version 1)
Quarter: 2019Q4

REPORT INFORMATION
  Report Type: Spontaneous
  Country: US (occurrence: US)
  Receive Date: 20190925
  Receipt Date: 20190925
  Transmission Date: 20200122
  Serious: Yes (Hospitalization)
  Sender: FDA-Public Use
  Company Number: None

PATIENT
  Age: 71 Year
  Sex: Male

DRUGS (1)
  1. AMOXICILLIN/CLAVULANATE [Suspect]
     Active Substance: AMOXICILLIN\CLAVULANATE POTASSIUM
     Indication: PHARYNGITIS
     Route: 048
     Dates: start: 20190829, end: 20190924

REACTIONS (7)
  - Diarrhoea [None]
  - Clostridium test positive [None]
  - Muscle spasms [None]
  - Clostridium difficile colitis [None]
  - Dehydration [None]
  - Faeces discoloured [None]
  - Colitis [None]

NARRATIVE: CASE EVENT DATE: 20190923
